FAERS Safety Report 9210438 (Version 3)
Quarter: 2013Q2

REPORT INFORMATION
  Report Type: Report from Study
  Country: DE (occurrence: DE)
  Receive Date: 20130404
  Receipt Date: 20130426
  Transmission Date: 20140414
  Serious: Yes (Hospitalization)
  Sender: FDA-Public Use
  Company Number: DE-ROCHE-1207578

PATIENT
  Age: 70 Year
  Sex: Male
  Weight: 80 kg

DRUGS (3)
  1. CAPECITABINE [Suspect]
     Indication: BREAST CANCER
     Dosage: LAST DOSE PRIOR TO SAE:21/MAR/2013
     Route: 048
     Dates: start: 20130215, end: 20130321
  2. NAB-PACLITAXEL [Suspect]
     Indication: BREAST CANCER
     Dosage: LAST DOSE PRIOR TO SAE:15/MAR/2013
     Route: 042
     Dates: start: 20130215, end: 20130321
  3. NAB-PACLITAXEL [Suspect]
     Route: 065
     Dates: start: 20130405

REACTIONS (4)
  - Tachyarrhythmia [Recovered/Resolved]
  - Aspartate aminotransferase increased [None]
  - Alpha hydroxybutyrate dehydrogenase increased [None]
  - Blood creatine phosphokinase MB increased [None]
